FAERS Safety Report 12514764 (Version 1)
Quarter: 2016Q2

REPORT INFORMATION
  Report Type: Spontaneous
  Country: US (occurrence: None)
  Receive Date: 20160629
  Receipt Date: 20160629
  Transmission Date: 20160815
  Serious: No
  Sender: FDA-Public Use
  Company Number: None

PATIENT
  Age: 59 Year
  Sex: Male

DRUGS (7)
  1. CLOZAPINE. [Concomitant]
     Active Substance: CLOZAPINE
  2. BENZTROPINE [Concomitant]
     Active Substance: BENZTROPINE
  3. LORATADINE. [Concomitant]
     Active Substance: LORATADINE
  4. ZOLPIDEM [Suspect]
     Active Substance: ZOLPIDEM\ZOLPIDEM TARTRATE
     Dosage: 10MG QHS PRN PO
     Route: 048
  5. LURASIDONE [Concomitant]
     Active Substance: LURASIDONE
  6. APAP [Concomitant]
     Active Substance: ACETAMINOPHEN
  7. METAMUCIL [Concomitant]
     Active Substance: PLANTAGO SEED

REACTIONS (3)
  - Fatigue [None]
  - Infrequent bowel movements [None]
  - Nausea [None]

NARRATIVE: CASE EVENT DATE: 20150503
